FAERS Safety Report 4311385-9 (Version None)
Quarter: 2004Q1

REPORT INFORMATION
  Report Type: 
  Country: None (occurrence: None)
  Receive Date: 20040302
  Receipt Date: 20040219
  Transmission Date: 20041129
  Serious: Yes (Death, Hospitalization)
  Sender: FDA-Public Use
  Company Number: 163-20785-03090329

PATIENT
  Age: 74 Year
  Sex: Male

DRUGS (5)
  1. THALOMID [Suspect]
     Indication: MULTIPLE MYELOMA
     Dosage: 100 MG DAILY ORAL
     Route: 048
     Dates: start: 20030206, end: 20030923
  2. DEXAMETHASONE [Concomitant]
  3. HYDROCHLOROTHIAZIDE [Concomitant]
  4. PROTONIX [Concomitant]
  5. ZOLOFT [Concomitant]

REACTIONS (5)
  - ABDOMINAL PAIN UPPER [None]
  - DISEASE PROGRESSION [None]
  - DIZZINESS [None]
  - MESENTERIC ARTERY STENOSIS [None]
  - SOMNOLENCE [None]
